FAERS Safety Report 7357631-9 (Version None)
Quarter: 2011Q1

REPORT INFORMATION
  Report Type: 
  Country: None (occurrence: None)
  Receive Date: 20110307
  Receipt Date: 20100910
  Transmission Date: 20110831
  Serious: No
  Sender: FDA-Public Use
  Company Number: AEUSA201000343

PATIENT
  Age: 58 Year
  Sex: Male
  Weight: 74.8435 kg

DRUGS (13)
  1. COUMADIN [Suspect]
     Indication: ATRIAL FIBRILLATION
     Dosage: 2.5 MG
     Dates: start: 20100701
  2. OXYGEN [Concomitant]
  3. FLONASE [Concomitant]
  4. NEBIVOLOL [Concomitant]
  5. SPIRIVA [Concomitant]
  6. HYDROCHLOROTHIAZIDE [Concomitant]
  7. FORMOTEROL FUMARATE [Concomitant]
  8. MUCINEX [Concomitant]
  9. PROLASTIN-C [Suspect]
  10. COMBIVENT [Concomitant]
  11. PROLASTIN-C [Suspect]
     Indication: ALPHA-1 ANTI-TRYPSIN DEFICIENCY
     Dosage: 60 MG/KG;QW;IV
     Route: 042
     Dates: start: 20100501
  12. XOPENEX [Concomitant]
  13. POTASSIUM CHLORIDE [Concomitant]

REACTIONS (6)
  - PROTHROMBIN TIME PROLONGED [None]
  - UPPER RESPIRATORY TRACT INFECTION [None]
  - HAEMOPTYSIS [None]
  - OXYGEN SATURATION DECREASED [None]
  - DYSPNOEA EXERTIONAL [None]
  - DRUG INTERACTION [None]
